FAERS Safety Report 9824489 (Version 2)
Quarter: 2014Q1

REPORT INFORMATION
  Report Type: Spontaneous
  Country: US (occurrence: US)
  Receive Date: 20140116
  Receipt Date: 20140116
  Transmission Date: 20141002
  Serious: No
  Sender: FDA-Public Use
  Company Number: US-GILEAD-2011-0039975

PATIENT
  Age: 43 Year
  Sex: Female

DRUGS (3)
  1. LETAIRIS [Suspect]
     Indication: PRODUCT USED FOR UNKNOWN INDICATION
     Route: 048
     Dates: start: 20101124
  2. REMODULIN [Concomitant]
  3. ADCIRCA [Concomitant]

REACTIONS (3)
  - Drug interaction [Unknown]
  - Abdominal pain [Unknown]
  - Swelling [Unknown]
